FAERS Safety Report 17662701 (Version 1)
Quarter: 2020Q2

REPORT INFORMATION
  Report Type: Spontaneous
  Country: JP (occurrence: JP)
  Receive Date: 20200413
  Receipt Date: 20200413
  Transmission Date: 20200713
  Serious: Yes (Hospitalization, Other)
  Sender: FDA-Public Use
  Company Number: JP-ALLERGAN-2014925US

PATIENT
  Sex: Male

DRUGS (1)
  1. MEMANTINE HCL - BP [Suspect]
     Active Substance: MEMANTINE
     Indication: IRRITABILITY
     Dosage: 20 MG, QD
     Route: 048
     Dates: start: 2017, end: 20200330

REACTIONS (8)
  - Altered state of consciousness [Recovered/Resolved]
  - Off label use [Unknown]
  - Pyrexia [Not Recovered/Not Resolved]
  - Dysuria [Not Recovered/Not Resolved]
  - Insomnia [Not Recovered/Not Resolved]
  - Pneumonia aspiration [Not Recovered/Not Resolved]
  - Dysphagia [Not Recovered/Not Resolved]
  - Depression [Not Recovered/Not Resolved]

NARRATIVE: CASE EVENT DATE: 2020
